FAERS Safety Report 20380036 (Version 1)
Quarter: 2022Q1

REPORT INFORMATION
  Report Type: Spontaneous
  Country: DE (occurrence: DE)
  Receive Date: 20220126
  Receipt Date: 20220126
  Transmission Date: 20220423
  Serious: Yes (Other)
  Sender: FDA-Public Use
  Company Number: DE-009507513-1910DEU016187

PATIENT
  Sex: Female

DRUGS (3)
  1. PEMETREXED [Suspect]
     Active Substance: PEMETREXED
     Indication: Non-small cell lung cancer
     Dosage: UNK, CYCLICAL,  4 CYCLES
     Route: 065
     Dates: start: 201902
  2. CARBOPLATIN [Suspect]
     Active Substance: CARBOPLATIN
     Indication: Non-small cell lung cancer
     Dosage: UNK, CYCLICAL, 4 CYCLES
     Route: 065
     Dates: start: 201902
  3. PEMBROLIZUMAB [Suspect]
     Active Substance: PEMBROLIZUMAB
     Indication: Non-small cell lung cancer
     Dosage: UNK, CYCLICAL, 4 CYCLES
     Route: 065
     Dates: start: 201902

REACTIONS (4)
  - Cutaneous vasculitis [Recovering/Resolving]
  - Pancytopenia [Unknown]
  - Skin lesion [Recovering/Resolving]
  - Pruritus [Recovering/Resolving]

NARRATIVE: CASE EVENT DATE: 20190101
